FAERS Safety Report 4747375-1 (Version None)
Quarter: 2005Q3

REPORT INFORMATION
  Report Type: 
  Country: None (occurrence: None)
  Receive Date: 20050816
  Receipt Date: 20050805
  Transmission Date: 20060218
  Serious: Yes (Life-Threatening)
  Sender: FDA-Public Use
  Company Number: 200510365BYL

PATIENT
  Age: 74 Year
  Sex: Male
  Weight: 64.3 kg

DRUGS (5)
  1. ASPIRIN [Suspect]
     Indication: LACUNAR INFARCTION
     Dosage: 100 MG, BID, ORAL
     Route: 048
     Dates: start: 20050610, end: 20050719
  2. BUFFERIN [Suspect]
     Indication: LACUNAR INFARCTION
     Dosage: 81 MG, BID, ORAL
     Route: 048
     Dates: start: 20050602, end: 20050609
  3. GASTER D [Concomitant]
  4. PREDONINE [Concomitant]
  5. FIBROGAMMIN [Concomitant]

REACTIONS (7)
  - BLOOD PRESSURE DECREASED [None]
  - CHEST PAIN [None]
  - GASTRIC ULCER HAEMORRHAGE [None]
  - MALAISE [None]
  - NEPHROTIC SYNDROME [None]
  - SHOCK HAEMORRHAGIC [None]
  - SMALL INTESTINAL HAEMORRHAGE [None]
